FAERS Safety Report 15361242 (Version 1)
Quarter: 2018Q3

REPORT INFORMATION
  Report Type: Spontaneous
  Country: US (occurrence: US)
  Receive Date: 20180907
  Receipt Date: 20180907
  Transmission Date: 20181010
  Serious: No
  Sender: FDA-Public Use
  Company Number: US-BAUSCH-BL-2018-023842

PATIENT
  Age: 76 Year
  Sex: Female
  Weight: 77.18 kg

DRUGS (3)
  1. ELIDEL [Suspect]
     Active Substance: PIMECROLIMUS
     Indication: PRODUCT USE IN UNAPPROVED INDICATION
  2. KETOCONAZOLE. [Concomitant]
     Active Substance: KETOCONAZOLE
     Indication: PRODUCT USED FOR UNKNOWN INDICATION
     Route: 061
  3. ELIDEL [Suspect]
     Active Substance: PIMECROLIMUS
     Indication: RASH
     Route: 061
     Dates: start: 20180720

REACTIONS (5)
  - Product use in unapproved indication [Not Recovered/Not Resolved]
  - Application site swelling [Not Recovered/Not Resolved]
  - Papule [Recovered/Resolved]
  - Application site erythema [Not Recovered/Not Resolved]
  - Application site pain [Not Recovered/Not Resolved]

NARRATIVE: CASE EVENT DATE: 2018
